FAERS Safety Report 16223185 (Version 1)
Quarter: 2019Q2

REPORT INFORMATION
  Report Type: Spontaneous
  Country: US (occurrence: US)
  Receive Date: 20190419
  Receipt Date: 20190419
  Transmission Date: 20190711
  Serious: Yes (Life-Threatening, Other)
  Sender: FDA-Public Use
  Company Number: None

PATIENT
  Age: 26 Year
  Sex: Female
  Weight: 85.5 kg

DRUGS (6)
  1. ANTIHISTAMINES [Concomitant]
     Active Substance: ANTIHISTAMINES NOS
  2. DERMASIL ADVANCED [Suspect]
     Active Substance: DIMETHICONE
     Indication: DRY SKIN
     Route: 061
     Dates: start: 20190330, end: 20190330
  3. ADARAX [Concomitant]
  4. KURVELO [Concomitant]
     Active Substance: ETHINYL ESTRADIOL\LEVONORGESTREL
  5. STEROIDS [Concomitant]
     Active Substance: UNSPECIFIED INGREDIENT
  6. STEROID CREAM [Concomitant]
     Active Substance: UNSPECIFIED INGREDIENT

REACTIONS (2)
  - Anaphylactic reaction [None]
  - Chemical burn [None]

NARRATIVE: CASE EVENT DATE: 20190330
